FAERS Safety Report 6060255-7 (Version None)
Quarter: 2009Q1

REPORT INFORMATION
  Report Type: 
  Country: None (occurrence: None)
  Receive Date: 20090129
  Receipt Date: 20090115
  Transmission Date: 20090719
  Serious: Yes (Hospitalization)
  Sender: FDA-Public Use
  Company Number: 2009000165

PATIENT
  Age: 59 Year
  Sex: Female

DRUGS (8)
  1. ERLOTINIB         (ERLOTINIB) [Suspect]
     Indication: NON-SMALL CELL LUNG CANCER
     Dosage: ORAL
     Route: 048
     Dates: start: 20080429
  2. AMARYL (GLIMEPRIIDE) [Concomitant]
  3. BLINDED  SUNITINIB [Concomitant]
  4. MAGNESIUM  (MAGNESIUM) [Concomitant]
  5. TRAMADOL HCL [Concomitant]
  6. KETOPROFEN [Concomitant]
  7. OMEPRAZOLE [Concomitant]
  8. TORECAN [Concomitant]

REACTIONS (6)
  - FATIGUE [None]
  - HYPOMAGNESAEMIA [None]
  - LUNG NEOPLASM MALIGNANT [None]
  - MALIGNANT NEOPLASM PROGRESSION [None]
  - NAUSEA [None]
  - VOMITING [None]
